FAERS Safety Report 13430323 (Version 1)
Quarter: 2017Q2

REPORT INFORMATION
  Report Type: Report from Study
  Country: ES (occurrence: ES)
  Receive Date: 20170412
  Receipt Date: 20170412
  Transmission Date: 20170912
  Serious: Yes (Hospitalization)
  Sender: FDA-Public Use
  Company Number: ES-JNJFOC-20160515942

PATIENT
  Age: 66 Year
  Sex: Male
  Weight: 110 kg

DRUGS (3)
  1. METFORMIN [Concomitant]
     Indication: HYPERGLYCAEMIA
     Route: 065
  2. INSULIN BASAL [Concomitant]
     Active Substance: INSULIN NOS
     Indication: HYPERGLYCAEMIA
     Route: 065
  3. PLACEBO [Suspect]
     Route: 048

REACTIONS (1)
  - Aortic valve stenosis [Recovered/Resolved]

NARRATIVE: CASE EVENT DATE: 20160403
